FAERS Safety Report 9849347 (Version 1)
Quarter: 2014Q1

REPORT INFORMATION
  Report Type: Spontaneous
  Country: US (occurrence: None)
  Receive Date: 20140124
  Receipt Date: 20140124
  Transmission Date: 20141002
  Serious: Yes (Other)
  Sender: FDA-Public Use
  Company Number: None

PATIENT
  Age: 73 Year
  Sex: Male
  Weight: 108.41 kg

DRUGS (14)
  1. ONGLYZA [Suspect]
     Indication: DIABETES MELLITUS
     Route: 048
     Dates: start: 20140116
  2. ADICOR [Concomitant]
  3. BUPROPION XL [Concomitant]
  4. GLIMENPRIDE [Concomitant]
  5. KETOCONZAOLE CREAM [Concomitant]
  6. METFORMIN [Concomitant]
  7. CPAP [Concomitant]
  8. GLUOCARD [Concomitant]
  9. APIRIN [Concomitant]
  10. CALCIUM GLUCONATE [Concomitant]
  11. CLARITIN [Concomitant]
  12. VITAMIN C [Concomitant]
  13. MATURE MULTIVITAMIN [Concomitant]
  14. OMEGA-3 FISH OIL [Concomitant]

REACTIONS (1)
  - Somnolence [None]
